FAERS Safety Report 9015660 (Version 1)
Quarter: 2013Q1

REPORT INFORMATION
  Report Type: Spontaneous
  Country: SE (occurrence: None)
  Receive Date: 20130102
  Receipt Date: 20130102
  Transmission Date: 20140127
  Serious: Yes (Hospitalization)
  Sender: FDA-Public Use
  Company Number: DSA_61569_2012

PATIENT
  Age: 80 Year
  Sex: Male

DRUGS (6)
  1. ENALAPRIL MALEATE [Suspect]
     Indication: PRODUCT USED FOR UNKNOWN INDICATION
     Route: 048
  2. ALLOPURINOL [Concomitant]
  3. SIMVASTATIN [Concomitant]
  4. CETIRIZINE HYDROCHLORIDE [Concomitant]
  5. FOLACIN (00024201) [Concomitant]
  6. BEHEPAN [Concomitant]

REACTIONS (2)
  - Hypersensitivity [None]
  - Angioedema [None]
